FAERS Safety Report 6783787-2 (Version None)
Quarter: 2010Q2

REPORT INFORMATION
  Report Type: 
  Country: None (occurrence: None)
  Receive Date: 20100622
  Receipt Date: 20100608
  Transmission Date: 20101027
  Serious: Yes (Other)
  Sender: FDA-Public Use
  Company Number: PHHY2010US34016

PATIENT
  Sex: Male
  Weight: 102 kg

DRUGS (12)
  1. EXJADE [Suspect]
     Indication: ACUTE LYMPHOCYTIC LEUKAEMIA
     Dosage: 2000 MG, QD
     Route: 048
     Dates: start: 20100517
  2. EXJADE [Suspect]
     Indication: SERUM FERRITIN INCREASED
  3. CALCIUM CARBONATE [Concomitant]
     Dosage: 100 MG DAILY
  4. CELEXA [Concomitant]
     Dosage: 20 MG DAILY
  5. ACTIGALL [Concomitant]
     Dosage: 300 MG, TID
  6. OXYCODONE HCL [Concomitant]
     Dosage: UNK, PRN
  7. PROTONIX [Concomitant]
     Dosage: 40 MG, BID
  8. ATIVAN [Concomitant]
     Dosage: UNK, PRN
  9. PREDNISONE [Concomitant]
     Dosage: 20 MG, QD
  10. ACYCLOVIR [Concomitant]
     Dosage: 200 MG, TID
     Route: 048
  11. POSACONAZOLE [Concomitant]
     Dosage: 200 MG, TID
  12. K-DUR [Concomitant]
     Dosage: 40 MEQ, QD
     Route: 048

REACTIONS (20)
  - ABDOMINAL PAIN [None]
  - BACK PAIN [None]
  - BLOOD CREATININE INCREASED [None]
  - BLOOD PRESSURE INCREASED [None]
  - CONDITION AGGRAVATED [None]
  - CYANOSIS [None]
  - DIARRHOEA [None]
  - DYSPNOEA EXERTIONAL [None]
  - GRAFT VERSUS HOST DISEASE [None]
  - HYPOKALAEMIA [None]
  - JOINT SWELLING [None]
  - LIVER DISORDER [None]
  - LIVER FUNCTION TEST ABNORMAL [None]
  - MUSCULAR WEAKNESS [None]
  - MUSCULOSKELETAL PAIN [None]
  - OEDEMA [None]
  - ORAL DISORDER [None]
  - RENAL IMPAIRMENT [None]
  - SPLENOMEGALY [None]
  - WEIGHT DECREASED [None]
